FAERS Safety Report 10177418 (Version 2)
Quarter: 2014Q3

REPORT INFORMATION
  Report Type: Spontaneous
  Country: US (occurrence: US)
  Receive Date: 20140516
  Receipt Date: 20140828
  Transmission Date: 20150326
  Serious: Yes (Other)
  Sender: FDA-Public Use
  Company Number: 2014SP002675

PATIENT
  Age: 31 Year
  Sex: Female

DRUGS (1)
  1. LATUDA [Suspect]
     Active Substance: LURASIDONE HYDROCHLORIDE
     Indication: AFFECTIVE DISORDER
     Route: 048

REACTIONS (4)
  - Stillbirth [Recovered/Resolved]
  - Exposure during pregnancy [None]
  - Off label use [None]
  - Pregnancy [None]
